FAERS Safety Report 8486182-3 (Version None)
Quarter: 2012Q3

REPORT INFORMATION
  Report Type: 
  Country: None (occurrence: None)
  Receive Date: 20120703
  Receipt Date: 20120626
  Transmission Date: 20120928
  Serious: Yes (Other)
  Sender: FDA-Public Use
  Company Number: US-SANOFI-AVENTIS-2012SA046447

PATIENT
  Age: 59 Year
  Sex: Female

DRUGS (3)
  1. LANTUS [Suspect]
     Dosage: DOSE:50 UNIT(S)
     Route: 058
     Dates: start: 20110101
  2. LANTUS [Suspect]
     Dosage: DOSE:30 UNIT(S)
     Route: 058
     Dates: start: 20120621, end: 20120621
  3. SOLOSTAR [Suspect]
     Dates: start: 20110101

REACTIONS (3)
  - BLOOD GLUCOSE INCREASED [None]
  - PNEUMONIA [None]
  - DYSPEPSIA [None]
